FAERS Safety Report 14337641 (Version 34)
Quarter: 2019Q3

REPORT INFORMATION
  Report Type: Spontaneous
  Country: GR (occurrence: GR)
  Receive Date: 20171229
  Receipt Date: 20190816
  Transmission Date: 20191004
  Serious: Yes (Other)
  Sender: FDA-Public Use
  Company Number: GR-MYLANLABS-2017M1082797

PATIENT
  Age: 62 Year
  Sex: Female

DRUGS (117)
  1. TRASTUZUMAB. [Suspect]
     Active Substance: TRASTUZUMAB
     Dosage: 1 DF, QD COMBINATION WITH GEMCITABINE AND CARBOPLATIN
     Dates: start: 2009
  2. TRASTUZUMAB. [Suspect]
     Active Substance: TRASTUZUMAB
     Dosage: 1 DOSAGE FORM, CYCLE( COMBINATION WITH FULVESTRANT)
     Route: 065
     Dates: start: 2009
  3. TRASTUZUMAB. [Suspect]
     Active Substance: TRASTUZUMAB
     Dosage: 1 DOSAGE FORM, CYCLE, COMBINATION WITH EXEMESTANE AND EVEROLIMUS
     Route: 065
  4. FULVESTRANT. [Suspect]
     Active Substance: FULVESTRANT
     Indication: BREAST CANCER METASTATIC
     Dosage: 1 DOSAGE FORM, QD
     Dates: start: 2009
  5. FULVESTRANT. [Suspect]
     Active Substance: FULVESTRANT
     Indication: METASTATIC MALIGNANT MELANOMA
     Dosage: 1 DOSAGE FORM, CYCLE
     Route: 065
     Dates: start: 2009
  6. TAMOXIFEN [Suspect]
     Active Substance: TAMOXIFEN
     Indication: RECURRENT CANCER
     Dosage: 1 DOSAGE FORM, CYCLE
     Route: 048
     Dates: start: 2009
  7. TAMOXIFEN [Suspect]
     Active Substance: TAMOXIFEN
     Dosage: UNK, CYCLE(COMBINATION WITH TRASTUZUMAB)
     Dates: start: 2009
  8. CARBOPLATIN. [Suspect]
     Active Substance: CARBOPLATIN
     Dosage: UNK
  9. EXEMESTANE. [Suspect]
     Active Substance: EXEMESTANE
     Indication: RECURRENT CANCER
     Dosage: 1 DF, CYCLE, COMBINATION WITH TRASTUZUMAB AND EVEROLIMUS
     Dates: start: 2009
  10. DOCETAXEL. [Suspect]
     Active Substance: DOCETAXEL
     Indication: RECURRENT CANCER
     Dosage: UNK
     Route: 065
  11. DOCETAXEL. [Suspect]
     Active Substance: DOCETAXEL
     Dosage: 1 DOSAGE FORM, QD
     Dates: start: 2009
  12. METHOTREXATE SODIUM. [Suspect]
     Active Substance: METHOTREXATE SODIUM
     Indication: BREAST CANCER METASTATIC
     Dosage: 1 DOSAGE FORM, QD
     Dates: start: 2006
  13. FLUOROURACIL                       /00098802/ [Suspect]
     Active Substance: FLUOROURACIL
     Dosage: UNK, CYCLE
     Dates: start: 2006
  14. TRASTUZUMAB. [Suspect]
     Active Substance: TRASTUZUMAB
     Indication: BREAST CANCER METASTATIC
     Dosage: 1, DF, QD COMBINATION WITH FULVESTRANT
     Route: 065
     Dates: start: 2009
  15. TRASTUZUMAB. [Suspect]
     Active Substance: TRASTUZUMAB
     Dosage: 1 DOSAGE FORM, CYCLE(COMBINATION WITH GEMCITABINE AND CARBOPLATIN)
     Dates: start: 2009
  16. FULVESTRANT. [Suspect]
     Active Substance: FULVESTRANT
     Indication: RECURRENT CANCER
     Dosage: 1 DF, QD COMBINATION WITH TRASTUZUMAB
     Dates: start: 2009
  17. CAPECITABINE. [Suspect]
     Active Substance: CAPECITABINE
     Indication: BREAST CANCER METASTATIC
     Dosage: 1 DOSAGE FORM, CYCLE,COMBINATION WITH TRASTUZUMAB
     Route: 065
     Dates: start: 2009
  18. CAPECITABINE. [Suspect]
     Active Substance: CAPECITABINE
     Dosage: 1 DOSAGE FORM, QD(COMBINATION WITH LAPATINIB)
     Route: 065
     Dates: start: 2009
  19. TAMOXIFEN [Suspect]
     Active Substance: TAMOXIFEN
     Dosage: 1 DF, QD COMBINATION WITH TRASTUZUMAB
     Dates: start: 2009
  20. CARBOPLATIN. [Suspect]
     Active Substance: CARBOPLATIN
     Indication: BREAST CANCER METASTATIC
     Dosage: 1 DF, QD, COMBINATION WITH TRASTUZUMAB AND GEMCITABINE
     Route: 065
     Dates: start: 2009
  21. EVEROLIMUS. [Suspect]
     Active Substance: EVEROLIMUS
     Dosage: UNK DOSAGE FORM, CYCLE(COMBINATION WITH TRASTZUMAB AND EXEMESTANE)
     Dates: start: 2009
  22. EVEROLIMUS. [Suspect]
     Active Substance: EVEROLIMUS
     Dosage: 1 DOSAGE FORM, CYCLE,COMBINATION WITH TRASTZUMAB AND EXEMESTANE
     Route: 065
  23. VINORELBINE [Suspect]
     Active Substance: VINORELBINE TARTRATE
     Dosage: 1 DOSAGE FORM, CYCLE(COMBINATION WITH TRASTUZUMAB)
     Route: 065
     Dates: start: 2009
  24. VINORELBINE [Suspect]
     Active Substance: VINORELBINE TARTRATE
     Dosage: UNK, CYCLE(COMBINATION WITH TRASTUZUMAB)
     Dates: start: 2009
  25. GEMCITABINE HYDROCHLORIDE. [Suspect]
     Active Substance: GEMCITABINE HYDROCHLORIDE
     Indication: BREAST CANCER METASTATIC
     Dosage: 1 DF,CYCLE COMBINATION WITH TRASTUZUMAB AND CARBOPLATIN
     Route: 065
     Dates: start: 2009
  26. DOXORUBICIN HYDROCHLORIDE LIPOSOME [Suspect]
     Active Substance: DOXORUBICIN HYDROCHLORIDE
     Indication: RECURRENT CANCER
     Dosage: UNK
  27. TRASTUZUMAB. [Suspect]
     Active Substance: TRASTUZUMAB
     Dosage: 1 DOSAGE FORM, CYCLE(COMBINATION WITH LIPOSOMAL DOXORUBICIN HCL)
     Dates: start: 2009
  28. TRASTUZUMAB. [Suspect]
     Active Substance: TRASTUZUMAB
     Dosage: UNK, CYCLE(COMBINATION WITH EXEMESTANE AND EVEROLIMUS)
     Dates: start: 2009
  29. TRASTUZUMAB. [Suspect]
     Active Substance: TRASTUZUMAB
     Dosage: 1 DOSAGE FORM, CYCLE, (CYCLIC COMBINATION WITH LIPOSOMAL DOXORUBICIN HCL)
     Route: 065
  30. TRASTUZUMAB. [Suspect]
     Active Substance: TRASTUZUMAB
     Dosage: 1 DOSAGE FORM, CYCLE, COMBINATION WITH CAPECITABINE
     Route: 065
  31. TRASTUZUMAB. [Suspect]
     Active Substance: TRASTUZUMAB
     Dosage: 1 DOSAGE FORM, CYCLE, COMBINATION WITH CAPECITABINE
     Route: 065
  32. CAPECITABINE. [Suspect]
     Active Substance: CAPECITABINE
     Dosage: UNK UNK, CYCLE( COMBINATION WITH TRASTUZUMAB)
     Dates: start: 2009
  33. DOCETAXEL. [Suspect]
     Active Substance: DOCETAXEL
     Indication: BREAST CANCER METASTATIC
     Dosage: 1 DF, CYCLE
     Route: 065
     Dates: start: 2009
  34. EVEROLIMUS. [Suspect]
     Active Substance: EVEROLIMUS
     Indication: BREAST CANCER
     Dosage: UNK
  35. EVEROLIMUS. [Suspect]
     Active Substance: EVEROLIMUS
     Indication: PROPHYLAXIS AGAINST TRANSPLANT REJECTION
     Dosage: 1 DF, QD COMBINATION WITH TRASTZUMAB AND EXEMESTANE
     Dates: start: 2009
  36. EVEROLIMUS. [Suspect]
     Active Substance: EVEROLIMUS
     Dosage: 1 DOSAGE FORM, CYCLE(COMBINATION WITH TRASTZUMAB AND EXEMESTANE)
     Dates: start: 2009
  37. ENDOXAN                            /00021102/ [Suspect]
     Active Substance: CYCLOPHOSPHAMIDE
     Dosage: UNK, CYCLE
     Dates: start: 2006
  38. LAPATINIB /01756704/ [Suspect]
     Active Substance: LAPATINIB DITOSYLATE
     Dosage: UNK UNK, CYCLE(COMBINATION WITH CAPECITABINE)
     Dates: start: 2009
  39. TRASTUZUMAB. [Suspect]
     Active Substance: TRASTUZUMAB
     Dosage: 1 DF, QD COMBINATION WITH EXEMESTANE AND EVEROLIMUS
     Dates: start: 2009
  40. TRASTUZUMAB. [Suspect]
     Active Substance: TRASTUZUMAB
     Dosage: 1 DOSAGE FORM, CYCLE
     Dates: start: 2009
  41. TRASTUZUMAB. [Suspect]
     Active Substance: TRASTUZUMAB
     Dosage: UNK, CYCLE(COMBINATION WITH LIPOSOMAL DOXORUBICIN HCL)
     Dates: start: 2009
  42. TRASTUZUMAB. [Suspect]
     Active Substance: TRASTUZUMAB
     Dosage: 1 DOSAGE FORM, CYCLE,COMBINATION WITH ERIBULIN
     Route: 065
  43. EPIRUBICIN [Suspect]
     Active Substance: EPIRUBICIN
     Indication: BREAST CANCER METASTATIC
     Dosage: 1 DOSAGE FORM, QD
     Dates: start: 2006
  44. EPIRUBICIN [Suspect]
     Active Substance: EPIRUBICIN
     Indication: RECURRENT CANCER
     Dosage: 1 DOSAGE FORM, CYCLE
     Dates: start: 2006
  45. EPIRUBICIN [Suspect]
     Active Substance: EPIRUBICIN
     Dosage: 1 DOSAGE FORM, CYCLE
     Route: 065
  46. CARBOPLATIN. [Suspect]
     Active Substance: CARBOPLATIN
     Dosage: 1 DF, QD, COMBINATION WITH TRASTUZUMAB AND GEMCITABINE
     Route: 065
  47. GEMCITABINE HYDROCHLORIDE. [Suspect]
     Active Substance: GEMCITABINE HYDROCHLORIDE
     Indication: RECURRENT CANCER
     Dosage: 1 DF, QD COMBINATION WITH TRASTUZUMAB AND CARBOPLATIN
     Route: 065
  48. LAPATINIB /01756704/ [Suspect]
     Active Substance: LAPATINIB DITOSYLATE
     Indication: METASTATIC MALIGNANT MELANOMA
     Dosage: 1 DOSAGE FORM, CYCLE (COMBINATION WITH CAPECITABINE)
     Dates: start: 2009
  49. TRASTUZUMAB. [Suspect]
     Active Substance: TRASTUZUMAB
     Dosage: 1 DF, QD COMBINATION WITH VINORELBINE
     Dates: start: 2009
  50. TRASTUZUMAB. [Suspect]
     Active Substance: TRASTUZUMAB
     Dosage: 1 DOSAGE FORM, CYCLE(COMBINATION WITH EXEMESTANE AND EVEROLIMUS)
     Dates: start: 2009
  51. TRASTUZUMAB. [Suspect]
     Active Substance: TRASTUZUMAB
     Dosage: 1 DOSAGE FORM, CYCLE(COMBINATION WITH TAMOXIFEN)
     Route: 065
     Dates: start: 2009
  52. TRASTUZUMAB. [Suspect]
     Active Substance: TRASTUZUMAB
     Dosage: UNK, CYCLE(COMBINATION WITH ERIBULIN)
     Dates: start: 2009
  53. TRASTUZUMAB. [Suspect]
     Active Substance: TRASTUZUMAB
     Dosage: UNK, CYCLE(COMBINATION WITH GEMCITABINE AND CARBOPLATIN)
     Dates: start: 2009
  54. TRASTUZUMAB. [Suspect]
     Active Substance: TRASTUZUMAB
     Dosage: 1 DOSAGE FORM, CYCLE, COMBINATION WITH GEMCITABINE AND CARBOPLATIN
     Route: 065
  55. EPIRUBICIN [Suspect]
     Active Substance: EPIRUBICIN
     Dosage: UNK, CYCLE
     Dates: start: 2006
  56. CAPECITABINE. [Suspect]
     Active Substance: CAPECITABINE
     Dosage: 1 DF, QD COMBINATION WITH CAPECITABINE
     Dates: start: 2009
  57. CAPECITABINE. [Suspect]
     Active Substance: CAPECITABINE
     Dosage: 1 DF, QD
     Route: 065
     Dates: start: 2009
  58. CAPECITABINE. [Suspect]
     Active Substance: CAPECITABINE
     Dosage: 1 DOSAGE FORM, CYCLE,COMBINATION WITH TRASTUZUMAB
     Route: 065
  59. TAMOXIFEN [Suspect]
     Active Substance: TAMOXIFEN
     Dosage: 1 DOSAGE FORM, CYCLE,1 DF, QD, COMBINATION WITH TRASTUZUMAB
     Route: 048
  60. ERIBULIN [Suspect]
     Active Substance: ERIBULIN
     Indication: BREAST CANCER METASTATIC
     Dosage: 1 DOSAGE FORM, QD (1 DF, QD, COMBINATION WITH TRASTUZUMAB
     Route: 042
     Dates: start: 2009
  61. VINORELBINE [Suspect]
     Active Substance: VINORELBINE TARTRATE
     Indication: RECURRENT CANCER
     Dosage: 1 DF, QD COMBINATION WITH TRASTUZUMAB
     Route: 065
  62. VINORELBINE [Suspect]
     Active Substance: VINORELBINE TARTRATE
     Dosage: UNK
  63. GEMCITABINE HYDROCHLORIDE. [Suspect]
     Active Substance: GEMCITABINE HYDROCHLORIDE
     Dosage: 1 DOSAGE FORM, QD
     Dates: start: 2009
  64. METHOTREXATE SODIUM. [Suspect]
     Active Substance: METHOTREXATE SODIUM
     Dosage: 1 DOSAGE FORM, CYCLE
     Dates: start: 2006
  65. TRASTUZUMAB. [Suspect]
     Active Substance: TRASTUZUMAB
     Dosage: 1 DOSAGE FORM, CYCLE(COMBINATION WITH CAPECITABINE)
     Dates: start: 2009
  66. TRASTUZUMAB. [Suspect]
     Active Substance: TRASTUZUMAB
     Dosage: UNK, CYCLE(COMBINATION WITH CAPECITABINE)
     Dates: start: 2009
  67. TRASTUZUMAB. [Suspect]
     Active Substance: TRASTUZUMAB
     Dosage: UNK, CYCLE(COMBINATION WITH TAMOXIFEN)
     Route: 065
     Dates: start: 2009
  68. FULVESTRANT. [Suspect]
     Active Substance: FULVESTRANT
     Dosage: 1 DOSAGE FORM, CYCLE(COMBINATION WITH TRASTUZUMAB)
     Route: 030
     Dates: start: 2009
  69. CAPECITABINE. [Suspect]
     Active Substance: CAPECITABINE
     Dosage: 1 DF, QD COMBINATION WITH TRASTUZUMAB
     Dates: start: 2009
  70. CARBOPLATIN. [Suspect]
     Active Substance: CARBOPLATIN
     Indication: RECURRENT CANCER
     Dosage: 1 DF, QD
     Route: 065
  71. DOCETAXEL. [Suspect]
     Active Substance: DOCETAXEL
     Dosage: UNK UNK, CYCLE
     Route: 065
     Dates: start: 2009
  72. ERIBULIN [Suspect]
     Active Substance: ERIBULIN
     Indication: RECURRENT CANCER
     Dosage: 1 DOSAGE FORM, CYCLE, COMBINATION WITH TRASTUZUMAB
     Route: 065
     Dates: start: 2009
  73. ERIBULIN [Suspect]
     Active Substance: ERIBULIN
     Dosage: UNK
     Route: 065
  74. VINORELBINE [Suspect]
     Active Substance: VINORELBINE TARTRATE
     Indication: BREAST CANCER METASTATIC
     Dosage: 1 DOSAGE FORM, CYCLE, COMBINATION WITH TRASTUZUMAB
     Route: 065
     Dates: start: 2009
  75. VINORELBINE [Suspect]
     Active Substance: VINORELBINE TARTRATE
     Dosage: 1 DF, QD COMBINATION WITH TRASTUZUMAB
     Dates: start: 2009
  76. ENDOXAN                            /00021102/ [Suspect]
     Active Substance: CYCLOPHOSPHAMIDE
     Dosage: 1 DOSAGE FORM, CYCLE
     Route: 065
  77. LAPATINIB /01756704/ [Suspect]
     Active Substance: LAPATINIB DITOSYLATE
     Indication: RECURRENT CANCER
     Dosage: 1 DOSAGE FORM, QD
     Dates: start: 2009
  78. LAPATINIB /01756704/ [Suspect]
     Active Substance: LAPATINIB DITOSYLATE
     Indication: BREAST CANCER METASTATIC
     Dosage: 1 DF, QD COMBINATION WITH CAPECITABINE
     Dates: start: 2009
  79. METHOTREXATE SODIUM. [Suspect]
     Active Substance: METHOTREXATE SODIUM
     Dosage: UNK UNK, CYCLE
     Dates: start: 2006
  80. DOXORUBICIN HYDROCHLORIDE LIPOSOME [Suspect]
     Active Substance: DOXORUBICIN HYDROCHLORIDE
     Dosage: UNK UNK, CYCLE( COMBINATION WITH TRASTUZUMAB)
     Dates: start: 2009
  81. TRASTUZUMAB. [Suspect]
     Active Substance: TRASTUZUMAB
     Indication: RECURRENT CANCER
     Dosage: 1 DF, QD COMBINATION WITH TAMOXIFEN
     Route: 065
     Dates: start: 2009
  82. TRASTUZUMAB. [Suspect]
     Active Substance: TRASTUZUMAB
     Dosage: 1 DF, QD COMBINATION WITH CAPECITABINE
     Dates: start: 2009
  83. TRASTUZUMAB. [Suspect]
     Active Substance: TRASTUZUMAB
     Dosage: 1 DOSAGE FORM, CYCLE(COMBINATION WITH VINORELBINE)
     Dates: start: 2009
  84. TRASTUZUMAB. [Suspect]
     Active Substance: TRASTUZUMAB
     Dosage: 1 DOSAGE FORM, CYCLE(COMBINATION WITH ERIBULIN)
     Dates: start: 2009
  85. TRASTUZUMAB. [Suspect]
     Active Substance: TRASTUZUMAB
     Dosage: UNK, CYCLE(COMBINATION WITH VINORELBINE)
     Dates: start: 2009
  86. CAPECITABINE. [Suspect]
     Active Substance: CAPECITABINE
     Indication: RECURRENT CANCER
     Dosage: 1 DOSAGE FORM, CYCLE,REGIMEN 1 COMBINATION WITH LAPATINIB
     Route: 065
     Dates: start: 2009
  87. CAPECITABINE. [Suspect]
     Active Substance: CAPECITABINE
     Dosage: UNK
  88. TAMOXIFEN [Suspect]
     Active Substance: TAMOXIFEN
     Dosage: UNK
  89. PACLITAXEL. [Suspect]
     Active Substance: PACLITAXEL
     Dosage: 1 DOSAGE FORM, QD
     Dates: start: 2006
  90. PACLITAXEL. [Suspect]
     Active Substance: PACLITAXEL
     Dosage: UNK UNK, CYCLE
     Route: 065
     Dates: start: 2006
  91. CARBOPLATIN. [Suspect]
     Active Substance: CARBOPLATIN
     Dosage: 1 DOSAGE FORM, CYCLE,COMBINATION WITH TRASTUZUMAB AND GEMCITABINE
     Route: 065
     Dates: start: 2009
  92. CARBOPLATIN. [Suspect]
     Active Substance: CARBOPLATIN
     Dosage: UNK UNK, CYCLE(COMBINATION WITH TRASTUZUMAB AND GEMCITABINE)
     Route: 065
     Dates: start: 2009
  93. EXEMESTANE. [Suspect]
     Active Substance: EXEMESTANE
     Dosage: 1 DF, CYCLE
  94. ERIBULIN [Suspect]
     Active Substance: ERIBULIN
     Dosage: UNK UNK, CYCLE(COMBINATION WITH TRASTUZUMAB)
     Route: 065
     Dates: start: 2009
  95. VINORELBINE [Suspect]
     Active Substance: VINORELBINE TARTRATE
     Dosage: 1 DOSAGE FORM, QD
     Dates: start: 2009
  96. ENDOXAN                            /00021102/ [Suspect]
     Active Substance: CYCLOPHOSPHAMIDE
     Indication: BREAST CANCER METASTATIC
     Dosage: 1 DOSAGE FORM, QD
     Dates: start: 2006
  97. METHOTREXATE SODIUM. [Suspect]
     Active Substance: METHOTREXATE SODIUM
     Dosage: 1 DOSAGE FORM, CYCLE
     Route: 065
  98. DOXORUBICIN HYDROCHLORIDE LIPOSOME [Suspect]
     Active Substance: DOXORUBICIN HYDROCHLORIDE
     Dosage: 1 DOSAGE FORM, CYCLE(COMBINATION WITH TRASTUZUMAB)
     Dates: start: 2009
  99. TRASTUZUMAB. [Suspect]
     Active Substance: TRASTUZUMAB
     Dosage: 1 DF, QD COMBINATION WITH LIPOSOMAL DOXORUBICIN HCL
     Dates: start: 2009
  100. TRASTUZUMAB. [Suspect]
     Active Substance: TRASTUZUMAB
     Dosage: UNK, CYCLE
     Dates: start: 2009
  101. TRASTUZUMAB. [Suspect]
     Active Substance: TRASTUZUMAB
     Dosage: UNK, CYCLE(COMBINATION WITH FULVESTRANT)
     Route: 065
     Dates: start: 2009
  102. FULVESTRANT. [Suspect]
     Active Substance: FULVESTRANT
     Dosage: UNK UNK, CYCLE(COMBINATION WITH TRASTUZUMAB)
     Dates: start: 2009
  103. CAPECITABINE. [Suspect]
     Active Substance: CAPECITABINE
     Dosage: UNK, CYCLE(COMBINATION WITH LAPATINIB)
     Dates: start: 2009
  104. TAMOXIFEN [Suspect]
     Active Substance: TAMOXIFEN
     Indication: BREAST CANCER METASTATIC
     Dosage: 1 DF, QD, COMBINATION WITH TRASTUZUMAB
     Route: 048
     Dates: start: 2009
  105. PACLITAXEL. [Suspect]
     Active Substance: PACLITAXEL
     Indication: BREAST CANCER METASTATIC
     Dosage: 1 DOSAGE FORM, CYCLE
     Route: 065
     Dates: start: 2006
  106. CARBOPLATIN. [Suspect]
     Active Substance: CARBOPLATIN
     Dosage: 1 DF, QD COMBINATION WITH TRASTUZUMAB AND GEMCITABINE
     Route: 065
     Dates: start: 2009
  107. EXEMESTANE. [Suspect]
     Active Substance: EXEMESTANE
     Indication: BREAST CANCER METASTATIC
     Dosage: 1 DOSAGE FORM, QD
     Route: 065
     Dates: start: 2009
  108. EXEMESTANE. [Suspect]
     Active Substance: EXEMESTANE
     Dosage: UNK, CYCLE,(COMBINATION WITH TRASTZUMAB AND EVEROLIMUS)
     Route: 065
     Dates: start: 2009
  109. EXEMESTANE. [Suspect]
     Active Substance: EXEMESTANE
     Dosage: 1 DF, CYCLE
     Dates: start: 2009
  110. EVEROLIMUS. [Suspect]
     Active Substance: EVEROLIMUS
     Indication: RECURRENT CANCER
     Dosage: 1 DOSAGE FORM, QD
     Route: 065
  111. GEMCITABINE HYDROCHLORIDE. [Suspect]
     Active Substance: GEMCITABINE HYDROCHLORIDE
     Dosage: UNK UNK, CYCLE( COMBINATION WITH TRASTUZUMAB AND CARBOPLATIN)
     Route: 065
     Dates: start: 2009
  112. GEMCITABINE HYDROCHLORIDE. [Suspect]
     Active Substance: GEMCITABINE HYDROCHLORIDE
     Dosage: 1 DOSAGE FORM, CYCLE,COMBINATION WITH TRASTUZUMAB AND CARBOPLATIN
     Route: 065
  113. ENDOXAN                            /00021102/ [Suspect]
     Active Substance: CYCLOPHOSPHAMIDE
     Dosage: 1 DOSAGE FORM, CYCLE
     Dates: start: 2006
  114. LAPATINIB /01756704/ [Suspect]
     Active Substance: LAPATINIB DITOSYLATE
     Dosage: 1 DOSAGE FORM, CYCLE,COMBINATION WITH TRASTZUMAB AND EXEMESTANE
     Route: 065
  115. DOXORUBICIN HYDROCHLORIDE LIPOSOME [Suspect]
     Active Substance: DOXORUBICIN HYDROCHLORIDE
     Indication: BREAST CANCER METASTATIC
     Dosage: 1 DF, QD COMBINATION WITH TRASTUZUMAB
     Route: 065
     Dates: start: 2009
  116. FLUOROURACIL                       /00098802/ [Suspect]
     Active Substance: FLUOROURACIL
     Indication: BREAST CANCER METASTATIC
     Dosage: 1 DOSAGE FORM, QD
     Dates: start: 2006
  117. FLUOROURACIL                       /00098802/ [Suspect]
     Active Substance: FLUOROURACIL
     Dosage: 1 DOSAGE FORM, CYCLE
     Route: 065
     Dates: start: 2006

REACTIONS (8)
  - Metastases to bone [Unknown]
  - Skin mass [Unknown]
  - Metastases to lung [Unknown]
  - Metastases to skin [Unknown]
  - Malignant neoplasm progression [Unknown]
  - Recurrent cancer [Unknown]
  - Oestrogen receptor positive breast cancer [Unknown]
  - Metastases to lymph nodes [Unknown]

NARRATIVE: CASE EVENT DATE: 2009
